FAERS Safety Report 8881576 (Version 1)
Quarter: 2012Q4

REPORT INFORMATION
  Report Type: Report from Study
  Country: JP (occurrence: JP)
  Receive Date: 20121102
  Receipt Date: 20121102
  Transmission Date: 20130627
  Serious: Yes (Hospitalization)
  Sender: FDA-Public Use
  Company Number: JP-009507513-1210JPN013841

PATIENT
  Age: 64 Year
  Sex: Male
  Weight: 59 kg

DRUGS (6)
  1. PEGINTRON [Suspect]
     Indication: HEPATITIS C
     Dosage: 1.5 Microgram per kilogram, qw
     Route: 058
     Dates: start: 20120822, end: 20120825
  2. REBETOL [Suspect]
     Indication: HEPATITIS C
     Dosage: 600 mg, qd
     Route: 048
     Dates: start: 20120822, end: 20120825
  3. TELAVIC [Suspect]
     Indication: HEPATITIS C
     Dosage: 2250 mg, qd
     Dates: start: 20120822, end: 20120825
  4. URSO [Concomitant]
     Indication: HEPATITIS C
     Dosage: 600 mg, qd
     Route: 048
  5. ADALAT L [Concomitant]
     Indication: HYPERTENSION
     Dosage: 40 mg, qd
  6. MICARDIS [Concomitant]
     Indication: HYPERTENSION
     Dosage: 40 mg, qd
     Route: 048

REACTIONS (1)
  - Renal impairment [Recovering/Resolving]
